FAERS Safety Report 17103362 (Version 1)
Quarter: 2019Q4

REPORT INFORMATION
  Report Type: Spontaneous
  Country: US (occurrence: US)
  Receive Date: 20191202
  Receipt Date: 20191202
  Transmission Date: 20200122
  Serious: Yes (Disabling)
  Sender: FDA-Public Use
  Company Number: None

PATIENT
  Age: 53 Year
  Sex: Female
  Weight: 60.75 kg

DRUGS (28)
  1. ALLENDRONATE [Concomitant]
  2. DOVONEX [Concomitant]
     Active Substance: CALCIPOTRIENE
  3. SYNTRHOID [Concomitant]
  4. PROBIOTICS [Concomitant]
     Active Substance: PROBIOTICS NOS
  5. DIOVAN [Concomitant]
     Active Substance: VALSARTAN
  6. MELATONIN [Concomitant]
     Active Substance: MELATONIN
  7. MAGNESIUM [Concomitant]
     Active Substance: MAGNESIUM
  8. HYDROCHLOROTHIAZIDE. [Concomitant]
     Active Substance: HYDROCHLOROTHIAZIDE
  9. XANAX [Concomitant]
     Active Substance: ALPRAZOLAM
  10. ACETAMINOPHEN. [Concomitant]
     Active Substance: ACETAMINOPHEN
  11. ASPIRIN. [Concomitant]
     Active Substance: ASPIRIN
  12. XOLAIR [Suspect]
     Active Substance: OMALIZUMAB
     Indication: URTICARIA
     Dates: start: 20190918, end: 20191018
  13. METOPROLOL SUCC ER [Concomitant]
     Active Substance: METOPROLOL SUCCINATE
  14. TETANUS TOXOID ADSORBED (VACCINE) [Concomitant]
     Active Substance: CLOSTRIDIUM TETANI TOXOID ANTIGEN (FORMALDEHYDE INACTIVATED)
  15. FLONASE [Concomitant]
     Active Substance: FLUTICASONE PROPIONATE
  16. IBUPROFEN. [Concomitant]
     Active Substance: IBUPROFEN
  17. CALCIUM [Concomitant]
     Active Substance: CALCIUM
  18. CRANBERRY. [Concomitant]
     Active Substance: CRANBERRY
  19. FLEXERIL [Concomitant]
     Active Substance: CYCLOBENZAPRINE HYDROCHLORIDE
  20. FLUOCINOLIDE STEROID SOLUTION [Concomitant]
  21. XOPENEX [Concomitant]
     Active Substance: LEVALBUTEROL HYDROCHLORIDE
  22. PROAIR HFA [Concomitant]
     Active Substance: ALBUTEROL SULFATE
  23. ALLEGRA [Concomitant]
     Active Substance: FEXOFENADINE HYDROCHLORIDE
  24. VALACYCLOVIR [Concomitant]
     Active Substance: VALACYCLOVIR HYDROCHLORIDE
  25. NAPROXEN. [Concomitant]
     Active Substance: NAPROXEN
  26. VITAMIN C [Concomitant]
     Active Substance: ASCORBIC ACID
  27. SINGULAIR [Concomitant]
     Active Substance: MONTELUKAST SODIUM
  28. SERTRALINE [Concomitant]
     Active Substance: SERTRALINE HYDROCHLORIDE

REACTIONS (6)
  - Arthralgia [None]
  - Hot flush [None]
  - Peripheral swelling [None]
  - Plantar fasciitis [None]
  - Feeling cold [None]
  - Psoriasis [None]

NARRATIVE: CASE EVENT DATE: 20191018
